FAERS Safety Report 6686632-9 (Version None)
Quarter: 2010Q2

REPORT INFORMATION
  Report Type: 
  Country: None (occurrence: None)
  Receive Date: 20100419
  Receipt Date: 20100406
  Transmission Date: 20101027
  Serious: Yes (Hospitalization, Disabling)
  Sender: FDA-Public Use
  Company Number: US-ELI_LILLY_AND_COMPANY-US201004001347

PATIENT
  Sex: Female
  Weight: 87.982 kg

DRUGS (18)
  1. BYETTA [Suspect]
     Indication: TYPE 2 DIABETES MELLITUS
     Dosage: 5 UG, 2/D
     Route: 058
     Dates: start: 20030901, end: 20031001
  2. BYETTA [Suspect]
     Dosage: 10 UG, 2/D
     Route: 058
     Dates: start: 20031001
  3. COUMADIN [Concomitant]
     Dosage: UNK, DAILY (1/D)
     Route: 048
  4. SYNTHROID [Concomitant]
     Dosage: UNK, DAILY (1/D)
     Route: 048
  5. ASPIRIN [Concomitant]
     Dosage: 325 MG, DAILY (1/D)
     Route: 048
  6. CYMBALTA [Concomitant]
     Dosage: 90 MG, DAILY (1/D)
     Route: 048
  7. FERROUS SULFATE TAB [Concomitant]
     Dosage: 325 MG, DAILY (1/D)
     Route: 048
  8. KLOR-CON [Concomitant]
     Dosage: 20 MEQ, DAILY (1/D)
     Route: 048
  9. METFORMIN HCL [Concomitant]
     Indication: TYPE 2 DIABETES MELLITUS
     Dosage: 100 MBQ, 2/D
     Route: 048
  10. MIRAPEX [Concomitant]
     Dosage: 8.25 MBQ, DAILY (1/D)
     Route: 048
  11. DIOVAN [Concomitant]
     Dosage: 40 MG, DAILY (1/D)
     Route: 048
  12. SINGULAIR [Concomitant]
     Dosage: 10 MG, DAILY (1/D)
     Route: 048
  13. STOOL SOFTENER [Concomitant]
     Dosage: UNK, DAILY (1/D)
     Route: 048
  14. TOPAMAX [Concomitant]
     Dosage: 50 MG, DAILY (1/D)
     Route: 048
  15. FUROSEMIDE [Concomitant]
     Dosage: 20 MG, DAILY (1/D)
  16. LORAZEPAM [Concomitant]
  17. CALCIUM [Concomitant]
  18. INSULIN [Concomitant]

REACTIONS (17)
  - ARTHRITIS INFECTIVE [None]
  - BLOOD GLUCOSE INCREASED [None]
  - CERVICAL SPINAL STENOSIS [None]
  - DYSPNOEA [None]
  - INTERVERTEBRAL DISC PROTRUSION [None]
  - KNEE ARTHROPLASTY [None]
  - MOVEMENT DISORDER [None]
  - NECK INJURY [None]
  - NERVOUS SYSTEM DISORDER [None]
  - OFF LABEL USE [None]
  - PLEURAL EFFUSION [None]
  - PULMONARY EMBOLISM [None]
  - RECTAL HAEMORRHAGE [None]
  - SENSORY LOSS [None]
  - SPINAL COLUMN STENOSIS [None]
  - THROMBOSIS [None]
  - WEIGHT DECREASED [None]
